FAERS Safety Report 9265184 (Version 2)
Quarter: 2013Q2

REPORT INFORMATION
  Report Type: Spontaneous
  Country: SE (occurrence: SE)
  Receive Date: 20130501
  Receipt Date: 20130620
  Transmission Date: 20140414
  Serious: Yes (Hospitalization)
  Sender: FDA-Public Use
  Company Number: SE-CELGENEUS-150-21880-13033483

PATIENT
  Age: 75 Year
  Sex: Male
  Weight: 96.8 kg

DRUGS (11)
  1. REVLIMID [Suspect]
     Indication: PLASMA CELL MYELOMA
     Dosage: 25 MILLIGRAM
     Route: 048
     Dates: start: 20130226
  2. REVLIMID [Suspect]
     Dosage: AT 08:00
     Route: 048
     Dates: start: 20130515, end: 20130605
  3. MLN9708/PLACEBO [Suspect]
     Indication: PLASMA CELL MYELOMA
     Route: 048
     Dates: start: 20130226
  4. MLN9708/PLACEBO [Suspect]
     Dosage: AT 08:00
     Route: 065
     Dates: start: 20130515, end: 20130615
  5. DEXAMETHASONE [Suspect]
     Indication: PLASMA CELL MYELOMA
     Route: 048
     Dates: start: 20130226, end: 20130319
  6. DEXAMETHASONE [Suspect]
     Dosage: AT 08:00
     Route: 065
     Dates: start: 20130515, end: 20130606
  7. WARAN [Concomitant]
     Indication: PRODUCT USED FOR UNKNOWN INDICATION
     Route: 065
     Dates: start: 20120228
  8. ENALAPRIL [Concomitant]
     Indication: BLOOD PRESSURE
     Dosage: AT 14:00
     Route: 065
     Dates: start: 20101004
  9. SIMVASTATIN [Concomitant]
     Indication: HYPERCHOLESTEROLAEMIA
     Dosage: AT NIGHT
     Route: 065
     Dates: start: 20101004
  10. PAMIDRONATE DISODIUM [Concomitant]
     Indication: PRODUCT USED FOR UNKNOWN INDICATION
     Dosage: AT 08:00
     Route: 065
     Dates: start: 20120113
  11. PANODIL [Concomitant]
     Indication: PRODUCT USED FOR UNKNOWN INDICATION
     Route: 065
     Dates: start: 20121123

REACTIONS (1)
  - Hyperglycaemia [Recovered/Resolved]
